FAERS Safety Report 9503659 (Version 2)
Quarter: 2013Q3

REPORT INFORMATION
  Report Type: Spontaneous
  Country: FR (occurrence: FR)
  Receive Date: 20130906
  Receipt Date: 20130918
  Transmission Date: 20140515
  Serious: Yes (Disabling)
  Sender: FDA-Public Use
  Company Number: PHHY2013FR095948

PATIENT
  Age: 42 Year
  Sex: Female

DRUGS (1)
  1. OFLOXACIN SANDOZ [Suspect]
     Indication: INCORRECT DRUG ADMINISTRATION DURATION
     Dosage: 1 DF, BID
     Dates: start: 20091014, end: 20091017

REACTIONS (7)
  - Vision blurred [Recovered/Resolved]
  - Accommodation disorder [Recovered/Resolved]
  - Asthenia [Recovered/Resolved]
  - Myalgia [Unknown]
  - Arthralgia [Unknown]
  - Headache [Recovered/Resolved]
  - Drug dispensing error [Unknown]
